FAERS Safety Report 7580752-2 (Version None)
Quarter: 2011Q2

REPORT INFORMATION
  Report Type: 
  Country: None (occurrence: None)
  Receive Date: 20110623
  Receipt Date: 20110607
  Transmission Date: 20111010
  Serious: Yes (Hospitalization, Other)
  Sender: FDA-Public Use
  Company Number: 2011MA006483

PATIENT
  Age: 75 Year
  Sex: Male

DRUGS (5)
  1. METOPROLOL TARTRATE [Concomitant]
  2. BUMETANIDE [Concomitant]
  3. RAMIPRIL [Suspect]
     Indication: CARDIAC FAILURE
     Dosage: 10 MG; OD
  4. DIGOXIN [Concomitant]
  5. SPIRONOLACTONE [Concomitant]

REACTIONS (16)
  - PERIPHERAL COLDNESS [None]
  - CARDIOGENIC SHOCK [None]
  - RENAL FAILURE ACUTE [None]
  - DIALYSIS [None]
  - HAEMOGLOBIN DECREASED [None]
  - HYPOPHAGIA [None]
  - ELECTROCARDIOGRAM QRS COMPLEX SHORTENED [None]
  - TROPONIN I INCREASED [None]
  - MITRAL VALVE DISEASE [None]
  - CONFUSIONAL STATE [None]
  - BRADYCARDIA [None]
  - ELECTROCARDIOGRAM QRS COMPLEX PROLONGED [None]
  - ACIDOSIS [None]
  - CARDIOACTIVE DRUG LEVEL ABOVE THERAPEUTIC [None]
  - HYPERKALAEMIA [None]
  - ELECTROCARDIOGRAM P WAVE ABNORMAL [None]
